FAERS Safety Report 6684900-8 (Version None)
Quarter: 2010Q2

REPORT INFORMATION
  Report Type: 
  Country: None (occurrence: None)
  Receive Date: 20100416
  Receipt Date: 20100408
  Transmission Date: 20101027
  Serious: Yes (Hospitalization, Other)
  Sender: FDA-Public Use
  Company Number: BR-ABBOTT-09P-020-0606995-00

PATIENT
  Sex: Female
  Weight: 78 kg

DRUGS (11)
  1. HUMIRA [Suspect]
     Indication: RHEUMATOID ARTHRITIS
     Route: 058
     Dates: end: 20100401
  2. HUMIRA [Suspect]
  3. METHOTREXATE [Concomitant]
     Indication: RHEUMATOID ARTHRITIS
     Route: 048
  4. FOLIC ACID [Concomitant]
     Indication: VITAMIN SUPPLEMENTATION
     Route: 048
  5. FERROUS SULFATE, VITAMIN B SUBSTANCES (COMBIRON) [Concomitant]
     Indication: ANAEMIA
     Route: 048
  6. CALCIUM [Concomitant]
     Indication: BONE DISORDER
     Route: 048
  7. CALCIUM CARBONATE, COLECALCIFEROL (OSCAL + D) [Concomitant]
     Indication: BONE DISORDER
     Route: 048
  8. OMEPRAZOLE [Concomitant]
     Indication: GASTRIC DISORDER
     Route: 048
  9. DICLOFENAC SODIUM [Concomitant]
     Indication: PAIN
     Route: 048
  10. CORDIRON [Concomitant]
     Indication: ANAEMIA PROPHYLAXIS
     Route: 048
  11. ALENDRONATE SODIUM [Concomitant]
     Indication: BONE DISORDER
     Route: 048
     Dates: start: 20090401

REACTIONS (10)
  - ARTHRALGIA [None]
  - DIABETES MELLITUS [None]
  - JOINT DISLOCATION [None]
  - JOINT SWELLING [None]
  - MOBILITY DECREASED [None]
  - NODULE [None]
  - OSTEOPOROSIS [None]
  - PAIN [None]
  - PAIN IN EXTREMITY [None]
  - VOMITING [None]
